FAERS Safety Report 24612141 (Version 2)
Quarter: 2025Q1

REPORT INFORMATION
  Report Type: Spontaneous
  Country: US (occurrence: US)
  Receive Date: 20241113
  Receipt Date: 20250305
  Transmission Date: 20250408
  Serious: Yes (Death, Hospitalization)
  Sender: JOHNSON AND JOHNSON
  Company Number: US-JNJFOC-20241125791

PATIENT

DRUGS (1)
  1. CARVYKTI [Suspect]
     Active Substance: CILTACABTAGENE AUTOLEUCEL
     Indication: Plasma cell myeloma refractory
     Route: 065

REACTIONS (4)
  - Sepsis [Fatal]
  - Parkinsonism [Unknown]
  - Neurotoxicity [Not Recovered/Not Resolved]
  - Cytopenia [Not Recovered/Not Resolved]
